FAERS Safety Report 7202880-3 (Version None)
Quarter: 2010Q4

REPORT INFORMATION
  Report Type: 
  Country: None (occurrence: None)
  Receive Date: 20101229
  Receipt Date: 20101217
  Transmission Date: 20110411
  Serious: Yes (Hospitalization)
  Sender: FDA-Public Use
  Company Number: IT-PFIZER INC-2010175430

PATIENT
  Age: 63 Year
  Sex: Female

DRUGS (3)
  1. IBUPROFEN [Suspect]
     Dosage: 600 MG, AS NEEDED
     Route: 065
     Dates: start: 20101101
  2. METHOTREXATE [Suspect]
     Indication: RHEUMATOID ARTHRITIS
     Dosage: 20 MG, WEEKLY
     Route: 030
     Dates: start: 20081201
  3. METHYLPREDNISOLONE [Concomitant]
     Dosage: 8 MG, UNK

REACTIONS (2)
  - LEUKOPENIA [None]
  - PLATELET COUNT DECREASED [None]
